FAERS Safety Report 7554622-X (Version None)
Quarter: 2011Q2

REPORT INFORMATION
  Report Type: 
  Country: None (occurrence: None)
  Receive Date: 20110617
  Receipt Date: 20110603
  Transmission Date: 20111010
  Serious: Yes (Hospitalization)
  Sender: FDA-Public Use
  Company Number: CA-JNJFOC-20110603561

PATIENT
  Sex: Female
  Weight: 70.2 kg

DRUGS (1)
  1. REMICADE [Suspect]
     Indication: CROHN'S DISEASE
     Route: 042
     Dates: start: 20090601

REACTIONS (3)
  - ARRHYTHMIA [None]
  - DYSPNOEA [None]
  - THROAT TIGHTNESS [None]
